FAERS Safety Report 6861475-1 (Version None)
Quarter: 2010Q3

REPORT INFORMATION
  Report Type: 
  Country: None (occurrence: None)
  Receive Date: 20100715
  Receipt Date: 20100630
  Transmission Date: 20110219
  Serious: Yes (Hospitalization)
  Sender: FDA-Public Use
  Company Number: ES-002363

PATIENT
  Age: 27 Year
  Sex: Female

DRUGS (1)
  1. HCG (HUMAN CHORIONIC GONADOTROPIN) [Suspect]
     Indication: IN VITRO FERTILISATION

REACTIONS (23)
  - ABORTION INDUCED [None]
  - ACUTE RESPIRATORY DISTRESS SYNDROME [None]
  - ASCITES [None]
  - BLOOD PRESSURE SYSTOLIC INCREASED [None]
  - CREPITATIONS [None]
  - CYST [None]
  - CYST RUPTURE [None]
  - DIZZINESS [None]
  - DRUG EXPOSURE BEFORE PREGNANCY [None]
  - GENERAL PHYSICAL HEALTH DETERIORATION [None]
  - HAEMATOCRIT DECREASED [None]
  - HAEMODYNAMIC INSTABILITY [None]
  - HAEMOGLOBIN DECREASED [None]
  - HEART RATE INCREASED [None]
  - HYPOVENTILATION [None]
  - LOCALISED INTRAABDOMINAL FLUID COLLECTION [None]
  - NAUSEA [None]
  - NEUTROPHIL COUNT INCREASED [None]
  - OEDEMA PERIPHERAL [None]
  - OVARIAN HYPERSTIMULATION SYNDROME [None]
  - PREGNANCY [None]
  - VOMITING [None]
  - WHITE BLOOD CELL COUNT INCREASED [None]
